FAERS Safety Report 7795832-6 (Version None)
Quarter: 2011Q3

REPORT INFORMATION
  Report Type: 
  Country: None (occurrence: None)
  Receive Date: 20110930
  Receipt Date: 20110926
  Transmission Date: 20111222
  Serious: Yes (Other)
  Sender: FDA-Public Use
  Company Number: 2011SO932279

PATIENT
  Age: 44 Year
  Sex: Female

DRUGS (6)
  1. PROAZAC [Concomitant]
  2. SAPHRIS [Suspect]
     Indication: BIPOLAR I DISORDER
     Dosage: 5 MG;QD
     Dates: start: 20110601, end: 20110601
  3. SAPHRIS [Suspect]
     Indication: SCHIZOPHRENIA
     Dosage: 5 MG;QD
     Dates: start: 20110601, end: 20110601
  4. AMBIEN [Concomitant]
  5. KLONAPIN [Concomitant]
  6. TRAZODONE HYDROCHLORIDE [Concomitant]

REACTIONS (22)
  - MUSCLE TWITCHING [None]
  - APPARENT DEATH [None]
  - DYSPHAGIA [None]
  - JOINT SWELLING [None]
  - EATING DISORDER [None]
  - DIZZINESS [None]
  - SPEECH DISORDER [None]
  - HYPOAESTHESIA ORAL [None]
  - CONFUSIONAL STATE [None]
  - CHOKING [None]
  - TREMOR [None]
  - AGEUSIA [None]
  - VISION BLURRED [None]
  - WEIGHT DECREASED [None]
  - TOOTHACHE [None]
  - HYPERHIDROSIS [None]
  - NAUSEA [None]
  - TOOTH LOSS [None]
  - HEADACHE [None]
  - AMNESIA [None]
  - VISUAL IMPAIRMENT [None]
  - FEAR [None]
